FAERS Safety Report 8857225 (Version 1)
Quarter: 2012Q4

REPORT INFORMATION
  Report Type: 
  Country: US (occurrence: US)
  Receive Date: 20121024
  Receipt Date: 20121024
  Transmission Date: 20130627
  Serious: Yes (Hospitalization)
  Sender: FDA-Public Use
  Company Number: US-ASTRAZENECA-2012SE79594

PATIENT
  Age: 56 Year
  Sex: Male
  Weight: 79.4 kg

DRUGS (4)
  1. ZESTRIL [Suspect]
     Route: 048
  2. ASPIRIN [Concomitant]
  3. NITROGLYCERIN [Concomitant]
     Dosage: 0.4 MG, TABLET AS NEEDED
  4. SERTRALINE [Concomitant]

REACTIONS (3)
  - Coronary artery disease [Unknown]
  - Depression [Unknown]
  - Hypertension [Unknown]
